FAERS Safety Report 9311263 (Version 1)
Quarter: 2013Q2

REPORT INFORMATION
  Report Type: Spontaneous
  Country: GR (occurrence: GR)
  Receive Date: 20130528
  Receipt Date: 20130528
  Transmission Date: 20140414
  Serious: Yes (Other)
  Sender: FDA-Public Use
  Company Number: GR-PFIZER INC-2013158690

PATIENT
  Age: 64 Year
  Sex: Female

DRUGS (3)
  1. XANAX [Suspect]
     Indication: ANXIETY
     Dosage: UNK
  2. STILNOX [Suspect]
     Dosage: UNK
  3. LONARID MONO [Suspect]
     Dosage: UNK

REACTIONS (8)
  - Central nervous system lesion [Unknown]
  - Sinusitis [Unknown]
  - Pulpitis dental [Unknown]
  - Drug withdrawal syndrome [Not Recovered/Not Resolved]
  - Incoherent [Not Recovered/Not Resolved]
  - Insomnia [Not Recovered/Not Resolved]
  - General physical health deterioration [Not Recovered/Not Resolved]
  - Amnesia [Not Recovered/Not Resolved]
